FAERS Safety Report 7302664-1 (Version None)
Quarter: 2011Q1

REPORT INFORMATION
  Report Type: 
  Country: None (occurrence: None)
  Receive Date: 20110218
  Receipt Date: 20110214
  Transmission Date: 20110831
  Serious: Yes (Death)
  Sender: FDA-Public Use
  Company Number: GB-ABBOTT-10P-167-0671026-00

PATIENT
  Sex: Male
  Weight: 83 kg

DRUGS (3)
  1. SULPHASALAZINE [Concomitant]
     Indication: PRODUCT USED FOR UNKNOWN INDICATION
     Dates: start: 20040413, end: 20040615
  2. METHOTREXATE [Concomitant]
     Indication: PRODUCT USED FOR UNKNOWN INDICATION
     Dates: start: 20051114, end: 20070209
  3. HUMIRA [Suspect]
     Indication: RHEUMATOID ARTHRITIS
     Route: 058
     Dates: start: 20050408, end: 20050914

REACTIONS (3)
  - ACUTE MYELOID LEUKAEMIA [None]
  - CEREBROVASCULAR ACCIDENT [None]
  - HYPERCOAGULATION [None]
